FAERS Safety Report 5519714-5 (Version None)
Quarter: 2007Q4

REPORT INFORMATION
  Report Type: 
  Country: None (occurrence: None)
  Receive Date: 20071116
  Receipt Date: 20070803
  Transmission Date: 20080405
  Serious: No
  Sender: FDA-Public Use
  Company Number: A0661037A

PATIENT
  Age: 67 Year
  Sex: Female

DRUGS (6)
  1. COREG CR [Suspect]
     Dosage: 20MG PER DAY
     Route: 048
     Dates: start: 20070617, end: 20070601
  2. COREG [Suspect]
     Dosage: 3.125MG TWICE PER DAY
  3. ACTOS [Concomitant]
  4. GLUCOPHAGE [Concomitant]
  5. IRON [Concomitant]
  6. CALCIUM [Concomitant]

REACTIONS (2)
  - HEADACHE [None]
  - INSOMNIA [None]
